FAERS Safety Report 21343786 (Version 1)
Quarter: 2022Q3

REPORT INFORMATION
  Report Type: Spontaneous
  Country: GB (occurrence: GB)
  Receive Date: 20220916
  Receipt Date: 20220916
  Transmission Date: 20221027
  Serious: Yes (Other)
  Sender: FDA-Public Use
  Company Number: None

PATIENT
  Sex: Male

DRUGS (12)
  1. LANSOPRAZOLE [Suspect]
     Active Substance: LANSOPRAZOLE
     Indication: Product used for unknown indication
     Route: 065
  2. AMOXICILLIN [Concomitant]
     Active Substance: AMOXICILLIN
     Indication: Product used for unknown indication
     Dosage: 1500 MILLIGRAM DAILY;  15 CAPSULE, UNIT DOSE AND STRENGTH  : 500 MG, FREQUENCY ; 3 , FREQUENCY TIME
  3. BACLOFEN [Concomitant]
     Active Substance: BACLOFEN
     Indication: Product used for unknown indication
     Dosage: 30 MILLIGRAM DAILY;  84 TABLET , UNIT DOSE AND STRENGTH  : 10 MG, FREQUENCY ; 3 , FREQUENCY TIME : 1
  4. BUMETANIDE [Concomitant]
     Active Substance: BUMETANIDE
     Indication: Product used for unknown indication
     Dosage: 2 MILLIGRAM DAILY;  (MORNING AND MIDDAY) - HELD, UNIT DOSE AND STRENGTH  : 1 MG, FREQUENCY ; 2 , FRE
  5. CARVEDILOL [Concomitant]
     Active Substance: CARVEDILOL
     Indication: Product used for unknown indication
     Dosage: 6.25 MILLIGRAM DAILY;  56 TABLET, UNIT DOSE AND STRENGTH  : 3.125  MG, FREQUENCY ; 2 , FREQUENCY TIM
  6. LACTULOSE [Concomitant]
     Active Substance: LACTULOSE
     Indication: Product used for unknown indication
     Dosage: 120 ML DAILY;  3.1-3.7G/5ML,1000 ML, UNIT DOSE : 30 ML, FREQUENCY ; 4 , FREQUENCY TIME : 1 DAYS,
  7. LORAZEPAM [Concomitant]
     Active Substance: LORAZEPAM
     Indication: Product used for unknown indication
     Dosage: 0.5-1MG PRN QDS
  8. ACETAMINOPHEN [Concomitant]
     Active Substance: ACETAMINOPHEN
     Indication: Product used for unknown indication
     Dosage: UNIT DOSE AND UNIT STRENGTH : 500 MG, EVERY 4-6 HOURS UP TO FOUR TIMES A DAY
  9. RIFAXIMIN [Concomitant]
     Active Substance: RIFAXIMIN
     Indication: Product used for unknown indication
     Dosage: 1100 MILLIGRAM DAILY; 56 TABLET, UNIT DOSE AND STRENGTH  : 550 MG, FREQUENCY ; 2 , FREQUENCY TIME :
  10. SPIRONOLACTONE [Concomitant]
     Active Substance: SPIRONOLACTONE
     Indication: Product used for unknown indication
     Dosage: 50 MILLIGRAM DAILY; 28 TABLET  - HELD -- RESTARTED, UNIT DOSE AND UNIT STRENGTH :50 MG, FREQUENCY TI
  11. TAMSULOSIN [Concomitant]
     Active Substance: TAMSULOSIN
     Indication: Product used for unknown indication
     Dosage: 400 MICROGRAM DAILY;  28 CAPSULE,UNIT DOSE AND UNIT STRENGTH : 400 MICROGRAM, FREQUENCY TIME : 1 DAY
  12. THIAMINE [Concomitant]
     Active Substance: THIAMINE
     Indication: Product used for unknown indication
     Dosage: 300 MILLIGRAM DAILY; 84 TABLET,  UNIT DOSE AND STRENGTH  : 100 MG, FREQUENCY ; 3 , FREQUENCY TIME :

REACTIONS (1)
  - Femur fracture [Recovered/Resolved]
